FAERS Safety Report 15959428 (Version 2)
Quarter: 2019Q2

REPORT INFORMATION
  Report Type: Report from Study
  Country: US (occurrence: US)
  Receive Date: 20190214
  Receipt Date: 20190516
  Transmission Date: 20190711
  Serious: Yes (Hospitalization, Other)
  Sender: FDA-Public Use
  Company Number: US-SA-2013SA105436

PATIENT
  Age: 63 Year
  Sex: Female
  Weight: 178 kg

DRUGS (4)
  1. TERIFLUNOMIDE. [Suspect]
     Active Substance: TERIFLUNOMIDE
     Dosage: UNK UNK, QD
     Route: 048
     Dates: start: 201602
  2. IBUPROFEN. [Concomitant]
     Active Substance: IBUPROFEN
     Indication: HEADACHE
     Dosage: UNK UNK,PRN
  3. ZYRTEC [Concomitant]
     Active Substance: CETIRIZINE HYDROCHLORIDE
     Indication: HYPERSENSITIVITY
     Dosage: UNK UNK,PRN
  4. TERIFLUNOMIDE. [Suspect]
     Active Substance: TERIFLUNOMIDE
     Indication: MULTIPLE SCLEROSIS
     Dosage: 14 MG,QD
     Route: 048
     Dates: start: 20130927

REACTIONS (21)
  - Emotional disorder [Unknown]
  - Peripheral swelling [Unknown]
  - Nocturia [Not Recovered/Not Resolved]
  - Fatigue [Not Recovered/Not Resolved]
  - Knee arthroplasty [Recovered/Resolved]
  - Pruritus [Recovered/Resolved]
  - Pain [Recovering/Resolving]
  - Headache [Unknown]
  - Cough [Not Recovered/Not Resolved]
  - Hepatic enzyme increased [Unknown]
  - Hemiparesis [Recovering/Resolving]
  - Nephrolithiasis [Recovered/Resolved]
  - Blood pressure increased [Not Recovered/Not Resolved]
  - Choking [Not Recovered/Not Resolved]
  - Hypoaesthesia [Unknown]
  - Muscular weakness [Unknown]
  - Crying [Unknown]
  - Paraesthesia [Unknown]
  - Grip strength decreased [Unknown]
  - Alopecia [Unknown]
  - Product dose omission [Unknown]

NARRATIVE: CASE EVENT DATE: 201401
